FAERS Safety Report 4394864-8 (Version None)
Quarter: 2004Q3

REPORT INFORMATION
  Report Type: 
  Country: None (occurrence: None)
  Receive Date: 20040706
  Receipt Date: 20040622
  Transmission Date: 20050211
  Serious: Yes (Hospitalization)
  Sender: FDA-Public Use
  Company Number: 237191

PATIENT
  Age: 32 Year
  Sex: Female
  Weight: 74.7 kg

DRUGS (3)
  1. NOVORAPID PENFILL (INSULIN ASPART) SOLUTION FOR INJECTION, 100U/ML [Suspect]
     Indication: DIABETES MELLITUS
     Dosage: 20 IE, QD, SUBCUTANEOUS
     Route: 058
     Dates: start: 20030502
  2. INSULATARD PENFILL (INSULIN HUMAN) SUSPENSION FOR INJECTION [Concomitant]
  3. FOLIC ACID [Concomitant]

REACTIONS (2)
  - ABORTION SPONTANEOUS [None]
  - DRUG EXPOSURE DURING PREGNANCY [None]
